FAERS Safety Report 15894285 (Version 1)
Quarter: 2019Q1

REPORT INFORMATION
  Report Type: Report from Study
  Country: None (occurrence: BR)
  Receive Date: 20190131
  Receipt Date: 20190131
  Transmission Date: 20190417
  Serious: Yes (Hospitalization, Other)
  Sender: FDA-Public Use
  Company Number: BR-ABBVIE-19K-020-2644504-00

PATIENT
  Sex: Female

DRUGS (1)
  1. HUMIRA [Suspect]
     Active Substance: ADALIMUMAB
     Indication: ANKYLOSING SPONDYLITIS
     Route: 058
     Dates: start: 20170707

REACTIONS (6)
  - Appendix disorder [Not Recovered/Not Resolved]
  - Megacolon [Not Recovered/Not Resolved]
  - Unevaluable event [Not Recovered/Not Resolved]
  - Stomal hernia [Not Recovered/Not Resolved]
  - Apparent death [Not Recovered/Not Resolved]
  - Gastrointestinal disorder [Not Recovered/Not Resolved]
